FAERS Safety Report 6296068-0 (Version None)
Quarter: 2009Q3

REPORT INFORMATION
  Report Type: 
  Country: None (occurrence: None)
  Receive Date: 20090804
  Receipt Date: 20090727
  Transmission Date: 20100115
  Serious: Yes (Hospitalization)
  Sender: FDA-Public Use
  Company Number: BR-ASTRAZENECA-2009UW21420

PATIENT
  Age: 81 Year
  Sex: Male

DRUGS (13)
  1. ATACAND HCT [Suspect]
     Indication: BLOOD PRESSURE
     Dosage: 16/12.5 MG DAILY
     Route: 048
     Dates: start: 20090501
  2. ATACAND [Concomitant]
     Route: 048
  3. CITALOPRAM [Concomitant]
     Indication: PARKINSON'S DISEASE
     Route: 048
     Dates: start: 20030101, end: 20090601
  4. PANTOPRAZOLE SODIUM [Concomitant]
     Indication: GASTRIC DISORDER
     Route: 048
     Dates: start: 20020101
  5. RASILEZ [Concomitant]
     Indication: HYPERTENSION
     Route: 048
     Dates: start: 20081201
  6. APRESOLINA [Concomitant]
     Indication: HYPERTENSION
     Route: 048
     Dates: start: 20081201
  7. PROLOPA [Concomitant]
     Indication: PARKINSON'S DISEASE
     Dosage: 200/50 MG THREE QUARTERS OF A TABLET FOUR TIMES A DAY
     Route: 048
     Dates: start: 20020101
  8. MANTIDAN [Concomitant]
     Indication: PARKINSON'S DISEASE
     Dosage: HALF OF A TABLET
     Route: 048
  9. RIVOTRIL [Concomitant]
     Indication: PARKINSON'S DISEASE
     Route: 048
  10. PROTEUS [Concomitant]
     Indication: OSTEOPOROSIS
     Route: 048
  11. CALCIUM [Concomitant]
     Indication: OSTEOPOROSIS
     Route: 048
  12. VITAMIN B-12 [Concomitant]
     Indication: OSTEOPOROSIS
     Route: 048
  13. SINVASTATIN [Concomitant]
     Indication: BLOOD CHOLESTEROL
     Route: 048

REACTIONS (6)
  - BLOOD SODIUM DECREASED [None]
  - CONFUSIONAL STATE [None]
  - FALL [None]
  - RIB FRACTURE [None]
  - SOMNOLENCE [None]
  - VISUAL ACUITY REDUCED [None]
